FAERS Safety Report 4536943-8 (Version None)
Quarter: 2004Q4

REPORT INFORMATION
  Report Type: 
  Country: None (occurrence: None)
  Receive Date: 20041220
  Receipt Date: 20041207
  Transmission Date: 20050328
  Serious: Yes (Other)
  Sender: FDA-Public Use
  Company Number: K200401879

PATIENT
  Age: 49 Year
  Sex: Female
  Weight: 137.9 kg

DRUGS (20)
  1. SKELAXIN [Suspect]
     Indication: OSTEOARTHRITIS
     Dosage: 800 MG, TWO DOSES, ORAL
     Route: 048
     Dates: start: 20041202, end: 20041203
  2. NEURONTIN [Concomitant]
  3. DILANTIN [Concomitant]
  4. KLONOPIN [Concomitant]
  5. TOPAMAX [Concomitant]
  6. LASIX [Concomitant]
  7. DETROL - SLOW RELEASE (TOLTERODINE L-TARTRATE) [Concomitant]
  8. TRILAFON /NET/ (PERPHENAZINE ENANTATE) [Concomitant]
  9. SINEQUAN [Concomitant]
  10. K-DUR 10 [Concomitant]
  11. COUMADIN [Concomitant]
  12. MACRODANTIN [Concomitant]
  13. CIPRO [Concomitant]
  14. AZMACORT [Concomitant]
  15. ALBUTEROL [Concomitant]
  16. FIORICET (PARACETAMOL, BUTALBITAL, CAFFEINE) [Concomitant]
  17. PERCOCET [Concomitant]
  18. IMODIUM [Concomitant]
  19. DARVOCET-N (DEXTROPROPDXYPHENE NAPSILATE, PARACETAMOL) [Concomitant]
  20. PYRIDIUM (PHENAZOPYRIDINE HYDROCHLORIDE) [Concomitant]

REACTIONS (1)
  - STATUS EPILEPTICUS [None]
